FAERS Safety Report 23952410 (Version 1)
Quarter: 2024Q2

REPORT INFORMATION
  Report Type: Spontaneous
  Country: CN (occurrence: CN)
  Receive Date: 20240607
  Receipt Date: 20240607
  Transmission Date: 20240716
  Serious: Yes (Other)
  Sender: FDA-Public Use
  Company Number: CN-JNJFOC-20240574396

PATIENT

DRUGS (1)
  1. IMBRUVICA [Suspect]
     Active Substance: IBRUTINIB
     Indication: Product used for unknown indication
     Dosage: 140 MG*90/BOTTLE?140MG 90 CAPS
     Route: 048

REACTIONS (4)
  - Suspected counterfeit product [Unknown]
  - Product contamination physical [Unknown]
  - Poor quality product administered [Unknown]
  - Herpes virus infection [Unknown]

NARRATIVE: CASE EVENT DATE: 20240101
